FAERS Safety Report 4676760-1 (Version None)
Quarter: 2005Q2

REPORT INFORMATION
  Report Type: 
  Country: None (occurrence: None)
  Receive Date: 20050527
  Receipt Date: 20050513
  Transmission Date: 20051028
  Serious: Yes (Other)
  Sender: FDA-Public Use
  Company Number: 8110

PATIENT
  Age: 27 Year
  Sex: Male
  Weight: 86.1834 kg

DRUGS (2)
  1. SEPTOCAINE [Suspect]
     Indication: LOCAL ANAESTHESIA
     Dosage: 2 CARP (NERV.BLK/INFIL)
  2. SULTEX [Suspect]
     Indication: LOCAL ANAESTHESIA

REACTIONS (2)
  - PARAESTHESIA [None]
  - PARAESTHESIA ORAL [None]
